FAERS Safety Report 5249225-6 (Version None)
Quarter: 2007Q1

REPORT INFORMATION
  Report Type: 
  Country: None (occurrence: None)
  Receive Date: 20070223
  Receipt Date: 20070209
  Transmission Date: 20070707
  Serious: Yes (Hospitalization, Other)
  Sender: FDA-Public Use
  Company Number: 2007RR-05793

PATIENT
  Age: 38 Year
  Sex: Female

DRUGS (3)
  1. CO-TRIMOXAZOLE(TRIMETHOPRIM, SULFAMETHOXAZOLE, CO-TRIMOXAZOLE) UNKNOWN [Suspect]
     Dosage: INTRAVENOUS
     Route: 042
  2. CLINDAMYCIN [Suspect]
     Indication: PNEUMOCYSTIS JIROVECI PNEUMONIA
  3. PRIMAQUINE [Suspect]
     Indication: PNEUMOCYSTIS JIROVECI PNEUMONIA

REACTIONS (2)
  - METHAEMOGLOBINAEMIA [None]
  - RASH [None]
